FAERS Safety Report 7358042-2 (Version None)
Quarter: 2011Q1

REPORT INFORMATION
  Report Type: 
  Country: None (occurrence: None)
  Receive Date: 20110317
  Receipt Date: 20110310
  Transmission Date: 20110831
  Serious: Yes (Death, Other)
  Sender: FDA-Public Use
  Company Number: US-TEVA-270620USA

PATIENT
  Sex: Female

DRUGS (2)
  1. METOCLOPRAMIDE HCL [Suspect]
  2. METOCLOPRAMIDE HCL [Suspect]

REACTIONS (5)
  - TARDIVE DYSKINESIA [None]
  - TREMOR [None]
  - EXTRAPYRAMIDAL DISORDER [None]
  - PARKINSONISM [None]
  - RESTLESS LEGS SYNDROME [None]
